FAERS Safety Report 9026217 (Version 1)
Quarter: 2012Q4

REPORT INFORMATION
  Report Type: Spontaneous
  Country: US (occurrence: None)
  Receive Date: 20121207
  Receipt Date: 20121207
  Transmission Date: 20130627
  Serious: Yes (Other)
  Sender: FDA-Public Use
  Company Number: 2012-US-0274

PATIENT
  Age: 50 Year
  Sex: Female

DRUGS (1)
  1. SANCUSO [Suspect]
     Indication: PROPHYLAXIS OF NAUSEA AND VOMITING
     Dosage: Transdermal
     Dates: start: 20121001, end: 20121008

REACTIONS (2)
  - Musculoskeletal pain [None]
  - Pulmonary embolism [None]
